FAERS Safety Report 9439121 (Version 1)
Quarter: 2013Q3

REPORT INFORMATION
  Report Type: Spontaneous
  Country: DE (occurrence: DE)
  Receive Date: 20130802
  Receipt Date: 20130802
  Transmission Date: 20140515
  Serious: Yes (Hospitalization, Other)
  Sender: FDA-Public Use
  Company Number: DE-B.I. PHARMACEUTICALS,INC./RIDGEFIELD-2013-DE-02049DE

PATIENT
  Age: 71 Year
  Sex: Female
  Weight: 64 kg

DRUGS (7)
  1. PRADAXA [Suspect]
     Indication: ATRIAL FIBRILLATION
     Dosage: 220 MG
     Dates: start: 201111, end: 201203
  2. PRADAXA [Suspect]
     Dosage: 300 MG
     Dates: start: 201203
  3. DIGIMERCK [Concomitant]
  4. RISPERIDON [Concomitant]
  5. METOPROLOL [Concomitant]
  6. PANTOPRAZOL [Concomitant]
  7. SIMVASTATIN [Concomitant]

REACTIONS (4)
  - Tachycardia [Recovered/Resolved]
  - Blood pressure increased [Recovered/Resolved]
  - Surgery [Unknown]
  - Depression [Not Recovered/Not Resolved]
